FAERS Safety Report 7064801-6 (Version None)
Quarter: 2010Q4

REPORT INFORMATION
  Report Type: 
  Country: None (occurrence: None)
  Receive Date: 20101027
  Receipt Date: 19870128
  Transmission Date: 20110411
  Serious: Yes (Death, Life-Threatening)
  Sender: FDA-Public Use
  Company Number: US-ROCHE-870200131001

PATIENT
  Age: 77 Year
  Sex: Female

DRUGS (8)
  1. ROFERON-A [Suspect]
     Route: 058
     Dates: start: 19870105, end: 19870128
  2. DIGOXIN [Concomitant]
     Route: 048
  3. DILTIAZEM [Concomitant]
     Route: 048
  4. XANAX [Concomitant]
     Route: 048
  5. HALCION [Concomitant]
     Route: 048
  6. BENADRYL [Concomitant]
     Route: 065
  7. AMPHOJEL [Concomitant]
     Route: 065
  8. ACETAMINOPHEN [Concomitant]
     Route: 065

REACTIONS (4)
  - ACUTE RESPIRATORY DISTRESS SYNDROME [None]
  - HAEMOLYTIC ANAEMIA [None]
  - HEPATIC NECROSIS [None]
  - HYPOTENSION [None]
